FAERS Safety Report 9595937 (Version 2)
Quarter: 2013Q4

REPORT INFORMATION
  Report Type: Report from Study
  Country: HU (occurrence: HU)
  Receive Date: 20131004
  Receipt Date: 20131004
  Transmission Date: 20140711
  Serious: Yes (Death, Hospitalization)
  Sender: FDA-Public Use
  Company Number: HU-ROCHE-601221

PATIENT
  Age: 73 Year
  Sex: Male
  Weight: 74.3 kg

DRUGS (20)
  1. RITUXIMAB [Suspect]
     Indication: MANTLE CELL LYMPHOMA
     Dosage: DOSAGE FORM: INFUSION.
     Route: 042
  2. RITUXIMAB [Suspect]
     Route: 042
  3. CYCLOPHOSPHAMIDE [Suspect]
     Indication: MANTLE CELL LYMPHOMA
     Route: 065
     Dates: start: 20081202
  4. DOXORUBICIN [Suspect]
     Indication: MANTLE CELL LYMPHOMA
     Route: 065
     Dates: start: 20081202
  5. VINCRISTINE [Suspect]
     Indication: MANTLE CELL LYMPHOMA
     Route: 065
     Dates: start: 20081202
  6. METHYLPREDNISOLONE [Suspect]
     Indication: MANTLE CELL LYMPHOMA
     Route: 065
     Dates: start: 20081202
  7. ASTRIX [Concomitant]
     Route: 065
  8. DIHYDROXYALUMINUM SODIUM CARBONATE [Concomitant]
     Route: 065
  9. CIRRUS [Concomitant]
     Route: 065
     Dates: start: 20081021, end: 20081111
  10. SUMETROLIM [Concomitant]
     Route: 065
     Dates: start: 20081021, end: 20081111
  11. FUROSEMIDE [Concomitant]
     Route: 065
  12. KALIUM-R [Concomitant]
     Route: 065
  13. THEOSPIREX [Concomitant]
     Route: 065
  14. MILURIT [Concomitant]
     Route: 065
  15. CLARITHROMYCIN [Concomitant]
     Route: 065
  16. AVELOX [Concomitant]
     Route: 065
  17. FLOXAL [Concomitant]
     Route: 065
  18. ARANESP [Concomitant]
     Route: 065
     Dates: start: 20081118, end: 20081118
  19. CILOXAN [Concomitant]
     Route: 065
  20. CORNEREGEL [Concomitant]
     Route: 065

REACTIONS (2)
  - Cardiac failure [Fatal]
  - Pneumothorax [Not Recovered/Not Resolved]
